FAERS Safety Report 22630729 (Version 1)
Quarter: 2023Q2

REPORT INFORMATION
  Report Type: Spontaneous
  Country: US (occurrence: None)
  Receive Date: 20230620
  Receipt Date: 20230620
  Transmission Date: 20230722
  Serious: Yes (Other)
  Sender: FDA-Public Use
  Company Number: None

PATIENT
  Age: 40 Year
  Sex: Female
  Weight: 76.2 kg

DRUGS (1)
  1. TISOTUMAB VEDOTIN [Suspect]
     Active Substance: TISOTUMAB VEDOTIN
     Dates: start: 20230401, end: 20230511

REACTIONS (2)
  - Hepatitis [None]
  - Febrile neutropenia [None]

NARRATIVE: CASE EVENT DATE: 20230511
